FAERS Safety Report 21249654 (Version 4)
Quarter: 2023Q1

REPORT INFORMATION
  Report Type: Spontaneous
  Country: DE (occurrence: DE)
  Receive Date: 20220824
  Receipt Date: 20230323
  Transmission Date: 20230418
  Serious: Yes (Life-Threatening, Disabling)
  Sender: FDA-Public Use
  Company Number: None

PATIENT
  Age: 44 Year
  Sex: Female
  Weight: 110 kg

DRUGS (11)
  1. MIRENA [Interacting]
     Active Substance: LEVONORGESTREL
     Indication: Iron deficiency
     Dosage: 20?G/DAY
     Route: 015
     Dates: start: 20170816
  2. MIRENA [Interacting]
     Active Substance: LEVONORGESTREL
     Indication: Heavy menstrual bleeding
  3. MIRENA [Interacting]
     Active Substance: LEVONORGESTREL
     Indication: Contraception
  4. LEVEMIR [Interacting]
     Active Substance: INSULIN DETEMIR
     Indication: Type 1 diabetes mellitus
     Dosage: UNK
     Dates: start: 2010
  5. ACTRAPID [Interacting]
     Active Substance: INSULIN HUMAN
     Indication: Type 1 diabetes mellitus
     Dosage: UNK
     Dates: start: 199704
  6. INSULIN HUMAN [Interacting]
     Active Substance: INSULIN HUMAN
     Indication: Type 1 diabetes mellitus
     Dosage: UNK
     Dates: start: 199704
  7. FIASP [Interacting]
     Active Substance: INSULIN ASPART
     Indication: Type 1 diabetes mellitus
     Dosage: 34 IU
     Dates: start: 202010
  8. FIASP [Interacting]
     Active Substance: INSULIN ASPART
     Indication: Insulin resistance
  9. TRESIBA [Interacting]
     Active Substance: INSULIN DEGLUDEC
     Indication: Insulin resistance
     Dosage: 38 IU
     Dates: start: 202010
  10. TRESIBA [Interacting]
     Active Substance: INSULIN DEGLUDEC
     Indication: Type 1 diabetes mellitus
  11. HUMALOG [Suspect]
     Active Substance: INSULIN LISPRO
     Indication: Type 1 diabetes mellitus
     Dosage: UNK
     Dates: start: 2010

REACTIONS (13)
  - Hepatic steatosis [Not Recovered/Not Resolved]
  - Abnormal weight gain [Not Recovered/Not Resolved]
  - Occupational exposure to air contaminants [Not Recovered/Not Resolved]
  - Pancreatic steatosis [None]
  - Spleen disorder [None]
  - Insulin resistance [None]
  - Drug interaction [Unknown]
  - Abdominal pain lower [None]
  - Amenorrhoea [None]
  - Mental disorder [None]
  - Lactose intolerance [None]
  - Urine odour abnormal [None]
  - Headache [None]

NARRATIVE: CASE EVENT DATE: 20070101
